FAERS Safety Report 21077788 (Version 4)
Quarter: 2022Q3

REPORT INFORMATION
  Report Type: Spontaneous
  Country: US (occurrence: US)
  Receive Date: 20220713
  Receipt Date: 20220825
  Transmission Date: 20221027
  Serious: No
  Sender: FDA-Public Use
  Company Number: US-PFIZER INC-PV202200021974

PATIENT
  Age: 63 Year
  Sex: Male

DRUGS (5)
  1. INLYTA [Suspect]
     Active Substance: AXITINIB
     Dosage: 5 MG, 2X/DAY
     Dates: start: 202205
  2. INLYTA [Suspect]
     Active Substance: AXITINIB
     Dosage: 5 MG, ALTERNATE DAY (5 MG ON MONDAY, WEDNESDAY AND FRIDAY AND 5 MG TWICE A DAY ON THE OTHER DAYS)
     Dates: start: 2022
  3. INLYTA [Suspect]
     Active Substance: AXITINIB
     Dosage: 10 MG, ALTERNATE DAY (5 MG ON MONDAY, WEDNESDAY AND FRIDAY AND 5 MG TWICE A DAY ON THE OTHER DAYS)
     Dates: start: 2022
  4. INLYTA [Suspect]
     Active Substance: AXITINIB
     Dosage: 3 MG, 2X/DAY
     Dates: start: 20220711
  5. INLYTA [Suspect]
     Active Substance: AXITINIB
     Dosage: 3 MG, 2X/DAY
     Route: 048

REACTIONS (6)
  - Off label use [Unknown]
  - Blister [Recovering/Resolving]
  - Hypertension [Recovering/Resolving]
  - Arthralgia [Recovering/Resolving]
  - Oral pain [Recovering/Resolving]
  - Diarrhoea [Recovering/Resolving]

NARRATIVE: CASE EVENT DATE: 20220101
